FAERS Safety Report 4840714-2 (Version None)
Quarter: 2005Q4

REPORT INFORMATION
  Report Type: 
  Country: None (occurrence: None)
  Receive Date: 20051027
  Receipt Date: 20050113
  Transmission Date: 20060501
  Serious: Yes (Other)
  Sender: FDA-Public Use
  Company Number: HQWYE198816JUL04

PATIENT
  Age: 54 Year
  Sex: Female
  Weight: 87.2 kg

DRUGS (3)
  1. PREMARIN [Suspect]
     Dates: start: 19900101, end: 20040601
  2. MEDROXYPROGESTERONE [Suspect]
     Dates: start: 19900101, end: 20040101
  3. PROVERA [Suspect]

REACTIONS (1)
  - MYOCARDIAL INFARCTION [None]
